FAERS Safety Report 26042148 (Version 1)
Quarter: 2025Q4

REPORT INFORMATION
  Report Type: Spontaneous
  Country: US (occurrence: None)
  Receive Date: 20251113
  Receipt Date: 20251113
  Transmission Date: 20260117
  Serious: No
  Sender: FDA-CTU
  Company Number: None

PATIENT
  Age: 43 Year
  Sex: Female
  Weight: 67.5 kg

DRUGS (4)
  1. HYDROXYCHLOROQUINE [Suspect]
     Active Substance: HYDROXYCHLOROQUINE
     Indication: Rheumatoid arthritis
     Dates: start: 20250701, end: 20250810
  2. ALPRAZOLAM [Concomitant]
     Active Substance: ALPRAZOLAM
  3. ESTRADIOL TRANSDERMAL SYSTEM [Concomitant]
     Active Substance: ESTRADIOL
  4. PROGESTERONE [Concomitant]
     Active Substance: PROGESTERONE

REACTIONS (4)
  - Depression [None]
  - Mood swings [None]
  - Irritability [None]
  - Anxiety [None]

NARRATIVE: CASE EVENT DATE: 20250801
